FAERS Safety Report 17266838 (Version 1)
Quarter: 2020Q1

REPORT INFORMATION
  Report Type: Spontaneous
  Country: US (occurrence: US)
  Receive Date: 20200114
  Receipt Date: 20200114
  Transmission Date: 20200409
  Serious: Yes (Death, Hospitalization)
  Sender: FDA-Public Use
  Company Number: US-HORIZON-PRE-0021-2020

PATIENT
  Age: 25 Year
  Sex: Male

DRUGS (2)
  1. PREDNISONE. [Suspect]
     Active Substance: PREDNISONE
     Indication: PNEUMOCYSTIS JIROVECII PNEUMONIA
  2. SULFOMETHOXAZOLE/TRIMETHOPRIM [Concomitant]

REACTIONS (2)
  - Condition aggravated [Fatal]
  - Kaposi^s sarcoma [Fatal]
